FAERS Safety Report 7727628 (Version 2)
Quarter: 2014Q2

REPORT INFORMATION
  Report Type: Spontaneous
  Country: GR (occurrence: GR)
  Receive Date: 20101222
  Receipt Date: 20140403
  Transmission Date: 20141212
  Serious: Yes (Other)
  Sender: FDA-Public Use
  Company Number: PHHY2010GR83802

PATIENT
  Age: 31 Year
  Sex: Female
  Weight: 46 kg

DRUGS (10)
  1. ZOLEDRONIC ACID [Suspect]
     Indication: OSTEITIS DEFORMANS
     Dosage: 3.5 MG, UNK
     Route: 042
     Dates: start: 20071031
  2. ZOLEDRONIC ACID [Suspect]
     Dosage: 5 MG, UNK
  3. CALCITONIN [Concomitant]
     Dates: start: 1983, end: 1993
  4. ETIDRONIC ACID [Concomitant]
     Dates: start: 200101, end: 200206
  5. RISEDRONIC ACID [Concomitant]
     Dates: start: 200212, end: 200303
  6. RISEDRONIC ACID [Concomitant]
     Dates: start: 200404, end: 200407
  7. DENOSUMAB [Concomitant]
     Dosage: 20 MG, UNK
     Route: 058
  8. DENOSUMAB [Concomitant]
     Dosage: 30 MG, UNK
     Route: 058
  9. DENOSUMAB [Concomitant]
     Dosage: 40 MG
  10. DENOSUMAB [Concomitant]
     Dosage: 30 MG

REACTIONS (2)
  - Blood parathyroid hormone increased [Recovered/Resolved]
  - Hypocalcaemia [Recovered/Resolved]
